FAERS Safety Report 6818667-7 (Version None)
Quarter: 2010Q3

REPORT INFORMATION
  Report Type: 
  Country: None (occurrence: None)
  Receive Date: 20100706
  Receipt Date: 20081120
  Transmission Date: 20110219
  Serious: Yes (Other)
  Sender: FDA-Public Use
  Company Number: US-PFIZER INC-2008098991

PATIENT
  Sex: Female
  Weight: 66.818 kg

DRUGS (3)
  1. ZMAX [Suspect]
     Indication: INFLUENZA
     Dates: start: 20080101
  2. ZMAX [Suspect]
     Indication: COUGH
  3. TENORMIN [Concomitant]

REACTIONS (3)
  - AGEUSIA [None]
  - ANOSMIA [None]
  - DEAFNESS UNILATERAL [None]
